FAERS Safety Report 21084877 (Version 1)
Quarter: 2022Q3

REPORT INFORMATION
  Report Type: Spontaneous
  Country: US (occurrence: US)
  Receive Date: 20220714
  Receipt Date: 20220714
  Transmission Date: 20221027
  Serious: No
  Sender: FDA-Public Use
  Company Number: US-009507513-2206USA004427

PATIENT
  Age: 2 Year
  Sex: Male

DRUGS (1)
  1. TEMODAR [Suspect]
     Active Substance: TEMOZOLOMIDE
     Indication: Primitive neuroectodermal tumour
     Route: 048

REACTIONS (2)
  - Product use issue [Unknown]
  - Product use in unapproved indication [Unknown]
